FAERS Safety Report 14506362 (Version 1)
Quarter: 2018Q1

REPORT INFORMATION
  Report Type: Spontaneous
  Country: CN (occurrence: CN)
  Receive Date: 20180208
  Receipt Date: 20180208
  Transmission Date: 20180509
  Serious: Yes (Other)
  Sender: FDA-Public Use
  Company Number: CN-BAXTER-2018BAX004036

PATIENT
  Age: 43 Year
  Sex: Female
  Weight: 60 kg

DRUGS (1)
  1. 20% MANNITOL INJECTION [Suspect]
     Active Substance: MANNITOL
     Indication: BRAIN OEDEMA
     Route: 041
     Dates: start: 20171209, end: 20171210

REACTIONS (3)
  - Hypoaesthesia oral [Recovering/Resolving]
  - Hypoaesthesia [Recovering/Resolving]
  - Palpitations [Recovering/Resolving]

NARRATIVE: CASE EVENT DATE: 20171210
